FAERS Safety Report 20317963 (Version 2)
Quarter: 2022Q1

REPORT INFORMATION
  Report Type: Spontaneous
  Country: US (occurrence: US)
  Receive Date: 20220110
  Receipt Date: 20220307
  Transmission Date: 20220423
  Serious: Yes (Hospitalization, Other)
  Sender: FDA-Public Use
  Company Number: US-MALLINCKRODT-T202200050

PATIENT
  Sex: Female

DRUGS (2)
  1. H.P. ACTHAR [Suspect]
     Active Substance: CORTICOTROPIN
     Indication: Sarcoidosis
     Dosage: 1 MILLILITER, 3 TIMES WEEKLY
     Route: 058
     Dates: start: 20191203
  2. H.P. ACTHAR [Suspect]
     Active Substance: CORTICOTROPIN
     Dosage: ONCE A WEEK
     Route: 065

REACTIONS (6)
  - Hospitalisation [Unknown]
  - COVID-19 [Recovering/Resolving]
  - Surgery [Recovering/Resolving]
  - Product dose omission issue [Recovered/Resolved]
  - Underdose [Not Recovered/Not Resolved]
  - Inappropriate schedule of product administration [Not Recovered/Not Resolved]

NARRATIVE: CASE EVENT DATE: 20220101
